FAERS Safety Report 20372178 (Version 1)
Quarter: 2022Q1

REPORT INFORMATION
  Report Type: Spontaneous
  Country: IE (occurrence: IE)
  Receive Date: 20220124
  Receipt Date: 20220124
  Transmission Date: 20220424
  Serious: Yes (Other)
  Sender: FDA-Public Use
  Company Number: IE-PRINSTON PHARMACEUTICAL INC.-2022PRN00017

PATIENT
  Age: 18 Year
  Sex: Female

DRUGS (1)
  1. DOXYCYCLINE HYCLATE [Suspect]
     Active Substance: DOXYCYCLINE HYCLATE
     Indication: Viral parotitis
     Dosage: UNK
     Route: 065

REACTIONS (1)
  - Rhabdomyolysis [Recovering/Resolving]
